APPROVED DRUG PRODUCT: OXCARBAZEPINE
Active Ingredient: OXCARBAZEPINE
Strength: 300MG
Dosage Form/Route: TABLET;ORAL
Application: A077802 | Product #002 | TE Code: AB
Applicant: GLENMARK PHARMACEUTICALS LTD
Approved: Oct 9, 2007 | RLD: No | RS: No | Type: RX